FAERS Safety Report 4378399-4 (Version None)
Quarter: 2004Q2

REPORT INFORMATION
  Report Type: 
  Country: None (occurrence: None)
  Receive Date: 20040616
  Receipt Date: 20040527
  Transmission Date: 20050107
  Serious: Yes (Other)
  Sender: FDA-Public Use
  Company Number: US-MERCK-0405USA02043

PATIENT
  Age: 75 Year
  Sex: Female

DRUGS (7)
  1. ALBUTEROL SULFATE [Concomitant]
     Route: 065
  2. ADVAIR DISKUS 100/50 [Concomitant]
     Route: 065
  3. HYDRALAZINE [Suspect]
     Indication: HYPERTENSION
     Route: 065
     Dates: end: 20040301
  4. NICOTINE POLACRILEX [Suspect]
     Indication: EX-SMOKER
     Dates: start: 20040315
  5. VIOXX [Suspect]
     Indication: ARTHRITIS
     Route: 048
     Dates: end: 20040301
  6. VERAPAMIL [Concomitant]
     Route: 065
  7. COUMADIN [Concomitant]
     Route: 065
     Dates: start: 20040201

REACTIONS (4)
  - DYSPNOEA [None]
  - OEDEMA PERIPHERAL [None]
  - PULMONARY OEDEMA [None]
  - WEIGHT INCREASED [None]
